FAERS Safety Report 6860460-3 (Version None)
Quarter: 2010Q2

REPORT INFORMATION
  Report Type: 
  Country: None (occurrence: None)
  Receive Date: 20100528
  Receipt Date: 20091029
  Transmission Date: 20101027
  Serious: Yes (Hospitalization, Other)
  Sender: FDA-Public Use
  Company Number: CIP08002536

PATIENT
  Age: 68 Year
  Sex: Female
  Weight: 55.8 kg

DRUGS (23)
  1. ACTONEL [Suspect]
     Indication: OSTEOPOROSIS PROPHYLAXIS
     Dosage: 35 MG ONCE WEEKLY, ORAL
     Route: 048
     Dates: start: 20030109, end: 20050928
  2. BONIVA [Suspect]
     Dosage: 150 MG MONTHLY, ORAL
     Route: 048
     Dates: start: 20070302, end: 20080102
  3. MIACALCIN [Concomitant]
  4. PREDNISONE TAB [Concomitant]
  5. NAPROXEN [Concomitant]
  6. LEFLUNOMIDE [Concomitant]
  7. CARBIDOPA (CARBIDOPA) [Concomitant]
  8. LEVODOPA (LEVODOPA) [Concomitant]
  9. HYDROCODONE BITARTRATE [Concomitant]
  10. CALCIUM (CALCIUM) [Concomitant]
  11. GLUCOSAMINE (GLUCOSAMINE) [Concomitant]
  12. FISH OIL (FISH OIL) [Concomitant]
  13. FLAXSEED OIL (LINUM USITATISSIMUM SEED OIL) [Concomitant]
  14. LUTEIN (XANTOFYL) [Concomitant]
  15. MVI (VITAMINS NOS) [Concomitant]
  16. METHOTREXATE [Concomitant]
  17. FOLIC ACID [Concomitant]
  18. AMLODIPINE BESYLATE [Concomitant]
  19. AMITRIPTYLINE HYDROCHLORIDE [Concomitant]
  20. DYAZIDE [Concomitant]
  21. ENBREL [Concomitant]
  22. DITROPAN [Concomitant]
  23. IMURAN [Concomitant]

REACTIONS (13)
  - ARTHRALGIA [None]
  - BACK PAIN [None]
  - BONE DENSITY DECREASED [None]
  - CONDITION AGGRAVATED [None]
  - ERYTHEMA [None]
  - GINGIVAL PAIN [None]
  - JAW DISORDER [None]
  - LOOSE TOOTH [None]
  - OSTEONECROSIS [None]
  - PAIN IN JAW [None]
  - PRIMARY SEQUESTRUM [None]
  - PURULENT DISCHARGE [None]
  - TOOTH FRACTURE [None]
